FAERS Safety Report 9516779 (Version 1)
Quarter: 2013Q3

REPORT INFORMATION
  Report Type: Spontaneous
  Country: US (occurrence: None)
  Receive Date: 20130903
  Receipt Date: 20130903
  Transmission Date: 20140515
  Serious: Yes (Hospitalization)
  Sender: FDA-Public Use
  Company Number: 102136

PATIENT
  Age: 50 Year
  Sex: Female

DRUGS (1)
  1. ETOMIDATE [Suspect]
     Indication: COLONOSCOPY
     Route: 042
     Dates: start: 20100621

REACTIONS (1)
  - Infusion site cellulitis [None]
